FAERS Safety Report 6443907-6 (Version None)
Quarter: 2009Q4

REPORT INFORMATION
  Report Type: 
  Country: None (occurrence: None)
  Receive Date: 20091113
  Receipt Date: 20091106
  Transmission Date: 20100525
  Serious: Yes (Hospitalization)
  Sender: FDA-Public Use
  Company Number: SPV1-2009-01810

PATIENT
  Age: 51 Year
  Sex: Male

DRUGS (8)
  1. FOSRENOL [Suspect]
     Indication: HYPERPHOSPHATAEMIA
     Dosage: ORAL
     Route: 048
     Dates: start: 20090318, end: 20090407
  2. FOSRENOL [Suspect]
     Indication: HYPERPHOSPHATAEMIA
     Dosage: ORAL
     Route: 048
     Dates: start: 20090408, end: 20090714
  3. FOSRENOL [Suspect]
     Indication: HYPERPHOSPHATAEMIA
     Dosage: ORAL
     Route: 048
     Dates: start: 20090715
  4. RENAGEL [Concomitant]
  5. CINACALCET HYDROCHLORIDE (CINACALCET HYDROCHLORIDE) [Concomitant]
  6. TENORMIN [Concomitant]
  7. RABEPRAZOLE SODIUM [Concomitant]
  8. AMLODIPINE BESYLATE [Concomitant]

REACTIONS (4)
  - ALCOHOL USE [None]
  - AUTOIMMUNE DISORDER [None]
  - ILEUS PARALYTIC [None]
  - PANCREATITIS ACUTE [None]
